FAERS Safety Report 5143602-X (Version None)
Quarter: 2006Q4

REPORT INFORMATION
  Report Type: 
  Country: None (occurrence: None)
  Receive Date: 20061030
  Receipt Date: 20061016
  Transmission Date: 20070319
  Serious: Yes (Hospitalization)
  Sender: FDA-Public Use
  Company Number: 2006126480

PATIENT
  Age: 56 Year
  Sex: Male
  Weight: 96.6 kg

DRUGS (11)
  1. GEODON [Suspect]
     Dosage: 200 MILLIGRAM 1 DAY
  2. ABILIFY [Suspect]
     Indication: SCHIZOPHRENIA
     Dosage: 1 DOSAGE FORM 2/1 DAY
     Dates: start: 20051212, end: 20060208
  3. SEROQUEL [Suspect]
     Dosage: 350 MILLIGRAM 1 DAY
  4. DILTIAZEM HCL [Concomitant]
  5. GLIPIZIDE [Concomitant]
  6. METOPROLOL TARTRATE [Concomitant]
  7. LISINOPRIL [Concomitant]
  8. HYDROCHLOROTHIAZIDE [Concomitant]
  9. AVANDIA (ROSIGILITAZONE MALEATE) [Concomitant]
  10. GLUCOPHAGE [Concomitant]
  11. DEPAKENE [Concomitant]

REACTIONS (3)
  - AGITATION [None]
  - DELUSION [None]
  - PARANOIA [None]
